FAERS Safety Report 5463136-2 (Version None)
Quarter: 2007Q3

REPORT INFORMATION
  Report Type: 
  Country: None (occurrence: None)
  Receive Date: 20070920
  Receipt Date: 20070305
  Transmission Date: 20080115
  Serious: Yes (Life-Threatening)
  Sender: FDA-Public Use
  Company Number: JP-ROCHE-484441

PATIENT
  Age: 36 Year
  Sex: Male
  Weight: 56 kg

DRUGS (16)
  1. TAMIFLU [Suspect]
     Indication: INFLUENZA
     Route: 048
     Dates: start: 20070215, end: 20070216
  2. PAXIL [Suspect]
     Route: 048
     Dates: start: 20060624, end: 20070214
  3. PAXIL [Suspect]
     Dosage: THERAPY RESTARTED.
     Route: 048
     Dates: start: 20070218
  4. 1 CONCOMITANT DRUG [Concomitant]
     Dosage: THERAPY INTERRUPTED ON 14 FEBRUARY 2007 AND RESTARTED ON 18 FEB 2007; DRUG: SAIKO-KA-RYUKOTSU-BOREI+
     Route: 048
     Dates: start: 20070130
  5. ALPRAZOLAM [Concomitant]
     Dosage: THERAPY INTERRUPTED ON 14 FEBRUARY 2007 AND RESTARTED ON 18 FEBRUARY 2007.
     Route: 048
     Dates: start: 20060715
  6. RIVOTRIL [Concomitant]
     Dosage: THERAPY INTERRUPTED ON 14 FEBRUARY 2007 AND RESTARTED ON 18 FEBRUARY 2007.
     Route: 048
     Dates: start: 20060715
  7. BIPERIDEN HYDROCHLORIDE TAB [Concomitant]
     Dosage: THERAPY INTERRUPTED ON 14 FEBRUARY 2007 AND RESTARTED ON 18 FEBRUARY 2007.
     Route: 048
     Dates: start: 20061128
  8. LENDORMIN [Concomitant]
     Dosage: THERAPY INTERRUPTED ON 14 FEBRUARY 2007 AND RESTARTED ON 18 FEBRUARY 2007.
     Route: 048
     Dates: start: 20070116
  9. MASI-NIN-GAN [Concomitant]
     Dosage: THERAPY INTERRUPTED ON 14 FEBRUARY 2007 AND RESTARTED ON 18 FEBRUARY 2007.
     Route: 048
     Dates: start: 20070206
  10. KEISHI-TO [Concomitant]
     Route: 048
     Dates: start: 20070214, end: 20070216
  11. MAO-TO [Concomitant]
     Route: 048
     Dates: start: 20070214, end: 20070216
  12. SHOUSAIKOTOU [Concomitant]
     Route: 048
     Dates: start: 20070214, end: 20070216
  13. KLARICID [Concomitant]
     Route: 048
     Dates: start: 20070215, end: 20070216
  14. HOCHU-EKKI-TO [Concomitant]
     Route: 048
     Dates: start: 20070217, end: 20070219
  15. 1 CONCOMITANT DRUG [Concomitant]
     Dosage: DRUG REPORTED AS: KOSO-SAN.
     Route: 048
     Dates: start: 20070217, end: 20070219
  16. UNSPECIFIED DRUG [Concomitant]
     Dosage: DRUG REPORTED AS HERBAL MEDICINE. 3-DAY DOSE AS NEEDED WAS PRESCRIBED.
     Dates: start: 20070214, end: 20070217

REACTIONS (1)
  - DRUG WITHDRAWAL SYNDROME [None]
